FAERS Safety Report 6222586-7 (Version None)
Quarter: 2009Q2

REPORT INFORMATION
  Report Type: 
  Country: None (occurrence: None)
  Receive Date: 20090609
  Receipt Date: 20090515
  Transmission Date: 20091009
  Serious: No
  Sender: FDA-Public Use
  Company Number: 2009005523

PATIENT
  Sex: Female

DRUGS (2)
  1. FENTORA [Suspect]
     Indication: MIGRAINE
     Dosage: BU
     Route: 002
  2. DURAGESIC (PARACETAMOL, ORPHENADRINE CITRATE) (POULTICE OR PATCH) [Concomitant]

REACTIONS (5)
  - CAUSTIC INJURY [None]
  - CONTRAINDICATION TO MEDICAL TREATMENT [None]
  - DRUG PRESCRIBING ERROR [None]
  - GINGIVAL ULCERATION [None]
  - INCORRECT DOSE ADMINISTERED [None]
